FAERS Safety Report 26077754 (Version 1)
Quarter: 2025Q4

REPORT INFORMATION
  Report Type: Spontaneous
  Country: US (occurrence: US)
  Receive Date: 20251122
  Receipt Date: 20251122
  Transmission Date: 20260118
  Serious: No
  Sender: MDD OPERATIONS
  Company Number: US-MDD US Operations-MDD202509-003428

PATIENT
  Age: 76 Year

DRUGS (2)
  1. ONAPGO [Suspect]
     Active Substance: APOMORPHINE HYDROCHLORIDE
     Indication: Parkinson^s disease
     Dates: start: 20250820
  2. RYTARY [Concomitant]
     Active Substance: CARBIDOPA\LEVODOPA
     Dosage: NOT PROVIDED

REACTIONS (2)
  - Somnolence [Not Recovered/Not Resolved]
  - Insomnia [Not Recovered/Not Resolved]
